FAERS Safety Report 5024571-X (Version None)
Quarter: 2006Q2

REPORT INFORMATION
  Report Type: 
  Country: None (occurrence: None)
  Receive Date: 20060609
  Receipt Date: 20060609
  Transmission Date: 20061013
  Serious: Yes (Other)
  Sender: FDA-Public Use
  Company Number: None

PATIENT
  Age: 62 Year
  Sex: Male

DRUGS (9)
  1. GLIPIZIDE [Suspect]
     Dosage: 5 MG QD
     Dates: start: 20050319, end: 20050330
  2. ISOFLURANE [Suspect]
     Dates: start: 20050314, end: 20050314
  3. FENTANYL TRANSDERMAL SYSTEM [Suspect]
     Dates: start: 20050311, end: 20050315
  4. DILAUDID [Suspect]
     Dates: start: 20050311, end: 20050515
  5. NEXIUM [Suspect]
     Dates: start: 20050415, end: 20050707
  6. PERCOCET [Suspect]
     Dates: start: 20050319, end: 20050401
  7. OXYCODONE HCL [Suspect]
     Dates: start: 20050401, end: 20050405
  8. COMBIVENT [Suspect]
     Dates: start: 20050314, end: 20050319
  9. KEFZOL [Suspect]
     Dates: start: 20050314, end: 20050319

REACTIONS (14)
  - BLOOD GLUCOSE INCREASED [None]
  - CHOLELITHIASIS [None]
  - CHROMATURIA [None]
  - DRUG TOXICITY [None]
  - GALLBLADDER DISORDER [None]
  - HEPATITIS C ANTIBODY POSITIVE [None]
  - HEPATITIS C RNA POSITIVE [None]
  - ILEUS [None]
  - LIVER DISORDER [None]
  - OEDEMA [None]
  - PAIN [None]
  - PERITONEAL EFFUSION [None]
  - PROTHROMBIN TIME PROLONGED [None]
  - SMALL INTESTINAL OBSTRUCTION [None]
